FAERS Safety Report 16772940 (Version 1)
Quarter: 2019Q3

REPORT INFORMATION
  Report Type: Spontaneous
  Country: AU (occurrence: AU)
  Receive Date: 20190904
  Receipt Date: 20190904
  Transmission Date: 20191005
  Serious: Yes (Other)
  Sender: FDA-Public Use
  Company Number: AU-JNJFOC-20190727801

PATIENT
  Age: 42 Year
  Sex: Male

DRUGS (1)
  1. RISPERDAL [Suspect]
     Active Substance: RISPERIDONE
     Indication: PRODUCT USED FOR UNKNOWN INDICATION
     Route: 065

REACTIONS (10)
  - Discomfort [Recovered/Resolved]
  - Energy increased [Recovered/Resolved]
  - Decreased appetite [Recovered/Resolved]
  - Pulse abnormal [Recovered/Resolved with Sequelae]
  - Heat stroke [Recovered/Resolved with Sequelae]
  - Paraesthesia [Recovered/Resolved]
  - Pyrexia [Recovered/Resolved with Sequelae]
  - Poor peripheral circulation [Recovered/Resolved with Sequelae]
  - Abdominal distension [Recovering/Resolving]
  - Dyspnoea [Recovered/Resolved with Sequelae]

NARRATIVE: CASE EVENT DATE: 20190120
